FAERS Safety Report 7933226-0 (Version None)
Quarter: 2011Q4

REPORT INFORMATION
  Report Type: 
  Country: None (occurrence: None)
  Receive Date: 20111122
  Receipt Date: 20111114
  Transmission Date: 20120403
  Serious: Yes (Hospitalization, Disabling)
  Sender: FDA-Public Use
  Company Number: US-JNJFOC-20090104461

PATIENT
  Sex: Male
  Weight: 65.76 kg

DRUGS (11)
  1. INVEGA [Suspect]
     Route: 048
     Dates: start: 20080701, end: 20080819
  2. DEPAKOTE [Concomitant]
     Dates: start: 20080701
  3. ZYRTEC [Concomitant]
     Dates: start: 20080701
  4. DEPAKOTE [Concomitant]
  5. INVEGA [Suspect]
     Indication: BIPOLAR DISORDER
     Route: 048
  6. LITHIUM CARBONATE [Concomitant]
     Dates: start: 20080701
  7. CATAPRES [Concomitant]
     Dates: start: 20080812, end: 20080819
  8. SINGULAIR [Concomitant]
     Dates: start: 20080701
  9. DEPAKOTE [Concomitant]
  10. BENADRYL [Concomitant]
     Indication: ILL-DEFINED DISORDER
  11. TRAZODONE HCL [Concomitant]
     Indication: ILL-DEFINED DISORDER

REACTIONS (6)
  - COMPARTMENT SYNDROME [None]
  - NEUROLEPTIC MALIGNANT SYNDROME [None]
  - RHABDOMYOLYSIS [None]
  - LEG AMPUTATION [None]
  - EXTREMITY NECROSIS [None]
  - DRUG ADMINISTRATION ERROR [None]
